FAERS Safety Report 8867802 (Version 1)
Quarter: 2012Q4

REPORT INFORMATION
  Report Type: 
  Country: US (occurrence: US)
  Receive Date: 20121025
  Receipt Date: 20121025
  Transmission Date: 20130627
  Serious: No
  Sender: FDA-Public Use
  Company Number: US-AMGEN-USASP2012018530

PATIENT
  Sex: Female

DRUGS (12)
  1. ENBREL [Suspect]
     Indication: PRODUCT USED FOR UNKNOWN INDICATION
     Dosage: 50 mg, qwk
     Route: 058
  2. METHOTREXATE [Concomitant]
     Dosage: 2.5 mg, UNK
  3. FOLIC ACID [Concomitant]
     Dosage: UNK
  4. PREDNISONE [Concomitant]
     Dosage: 2.5 mg, UNK
  5. CALCIUM D                          /00944201/ [Concomitant]
     Dosage: UNK
  6. HYDROCODONE/APAP [Concomitant]
     Dosage: UNK
  7. WELCHOL [Concomitant]
     Dosage: 625 mg, UNK
  8. GLIMEPIRIDE [Concomitant]
     Dosage: 2 mg, UNK
  9. LISINOPRIL [Concomitant]
     Dosage: 2.5 mg, UNK
  10. SYMBICORT [Concomitant]
     Dosage: UNK
  11. SPIRIVA HANDIHALER [Concomitant]
     Dosage: UNK
  12. PROAIR HFA [Concomitant]
     Dosage: UNK

REACTIONS (1)
  - Sinusitis [Not Recovered/Not Resolved]
